FAERS Safety Report 20473364 (Version 1)
Quarter: 2022Q1

REPORT INFORMATION
  Report Type: Spontaneous
  Country: US (occurrence: US)
  Receive Date: 20220215
  Receipt Date: 20220215
  Transmission Date: 20220423
  Serious: No
  Sender: FDA-Public Use
  Company Number: US-ORGANON-O2202USA000940

PATIENT
  Age: 47 Year
  Sex: Female

DRUGS (2)
  1. ELOCON [Suspect]
     Active Substance: MOMETASONE FUROATE
     Indication: Skin irritation
     Dosage: AS NEEDED
     Dates: start: 2021
  2. ELOCON [Suspect]
     Active Substance: MOMETASONE FUROATE
     Indication: Skin irritation
     Dosage: AS NEEDED
     Dates: start: 2012

REACTIONS (1)
  - Drug ineffective [Unknown]

NARRATIVE: CASE EVENT DATE: 20210101
